FAERS Safety Report 19714980 (Version 1)
Quarter: 2021Q3

REPORT INFORMATION
  Report Type: Spontaneous
  Country: IN (occurrence: IN)
  Receive Date: 20210818
  Receipt Date: 20210818
  Transmission Date: 20211014
  Serious: No
  Sender: FDA-Public Use
  Company Number: IN-LUPIN LIMITED-2020-10141

PATIENT

DRUGS (7)
  1. PAMORELIN [Concomitant]
     Active Substance: TRIPTORELIN PAMOATE
     Indication: NEOPLASM MALIGNANT
     Dosage: 11.25 MILLIGRAM ONCE IN A 3 MONTHS
     Route: 065
  2. GLIMEPIRIDE;METFORMIN [Concomitant]
     Indication: DIABETES MELLITUS
     Dosage: UNK
     Route: 065
  3. OLMESARTAN [Concomitant]
     Active Substance: OLMESARTAN
     Indication: HYPERTENSION
     Dosage: UNK
     Route: 065
  4. LOSAR [LOSARTAN POTASSIUM] [Concomitant]
     Active Substance: LOSARTAN POTASSIUM
     Indication: HYPERTENSION
     Dosage: 50 MILLIGRAM, QD (IN THE MORNING)
     Route: 065
  5. NOVASTAT FILM C.TABS 10 MG [Suspect]
     Active Substance: ROSUVASTATIN CALCIUM
     Indication: BLOOD CHOLESTEROL ABNORMAL
     Dosage: 10 MILLIGRAM, QD
     Route: 048
     Dates: start: 20201130
  6. URIMAX [TAMSULOSIN HYDROCHLORIDE] [Concomitant]
     Indication: PROSTATOMEGALY
     Dosage: 1 DOSAGE FORM, QD IN NIGHT
     Route: 065
  7. AMILIP [Concomitant]
     Indication: HYPERTENSION
     Dosage: 2.5 MILLIGRAM, QD IN THE EVENING
     Route: 065

REACTIONS (3)
  - Insomnia [Not Recovered/Not Resolved]
  - Headache [Not Recovered/Not Resolved]
  - Dizziness [Not Recovered/Not Resolved]

NARRATIVE: CASE EVENT DATE: 20201130
